FAERS Safety Report 10229454 (Version 2)
Quarter: 2014Q2

REPORT INFORMATION
  Report Type: Spontaneous
  Country: DE (occurrence: DE)
  Receive Date: 20140611
  Receipt Date: 20140619
  Transmission Date: 20141212
  Serious: Yes (Hospitalization)
  Sender: FDA-Public Use
  Company Number: DE-RANBAXY-2014R1-81881

PATIENT
  Age: 26 Year
  Sex: Male

DRUGS (6)
  1. FLUOXETINE [Suspect]
     Indication: PRODUCT USED FOR UNKNOWN INDICATION
     Dosage: 20 MG, QD
     Route: 048
     Dates: start: 20120427, end: 20120501
  2. FLUOXETINE [Suspect]
     Dosage: 40 MG, QD
     Route: 048
     Dates: start: 20120502, end: 20120509
  3. FLUOXETINE [Suspect]
     Dosage: 60 MG, QD
     Route: 048
     Dates: start: 20120510, end: 20120516
  4. FLUOXETINE [Suspect]
     Dosage: 40 MG, QD
     Route: 048
     Dates: start: 20120517, end: 20120523
  5. FLUOXETINE [Suspect]
     Dosage: 20 MG, QD
     Route: 048
     Dates: start: 20120524, end: 20120528
  6. VALPORAL [Concomitant]
     Indication: PRODUCT USED FOR UNKNOWN INDICATION
     Dosage: 1000 MG, QD
     Route: 048

REACTIONS (1)
  - Erectile dysfunction [Recovered/Resolved]
